FAERS Safety Report 25769473 (Version 1)
Quarter: 2025Q3

REPORT INFORMATION
  Report Type: Spontaneous
  Country: US (occurrence: US)
  Receive Date: 20250906
  Receipt Date: 20250906
  Transmission Date: 20251020
  Serious: Yes (Other)
  Sender: AMGEN
  Company Number: US-AMGEN-USASP2025175968

PATIENT

DRUGS (2)
  1. RITUXIMAB [Suspect]
     Active Substance: RITUXIMAB
     Indication: Follicular lymphoma
     Route: 065
  2. COPANLISIB [Concomitant]
     Active Substance: COPANLISIB
     Indication: Follicular lymphoma
     Dosage: 60 MILLIGRAM, Q3WK
     Route: 065

REACTIONS (10)
  - Autoimmune hepatitis [Unknown]
  - COVID-19 [Unknown]
  - Infection [Unknown]
  - Neutropenia [Unknown]
  - Infusion related reaction [Unknown]
  - Therapy partial responder [Unknown]
  - Mucosal inflammation [Unknown]
  - Rash [Unknown]
  - Nausea [Unknown]
  - Vomiting [Unknown]
